FAERS Safety Report 14919369 (Version 1)
Quarter: 2018Q2

REPORT INFORMATION
  Report Type: Spontaneous
  Country: US (occurrence: US)
  Receive Date: 20180521
  Receipt Date: 20180521
  Transmission Date: 20180711
  Serious: No
  Sender: FDA-Public Use
  Company Number: US-BAYER-2018-090090

PATIENT
  Age: 74 Year
  Sex: Female
  Weight: 74.83 kg

DRUGS (7)
  1. METFORMIN [Concomitant]
     Active Substance: METFORMIN HYDROCHLORIDE
     Dosage: UNK
  2. VITAMIN B12 [Concomitant]
     Active Substance: CYANOCOBALAMIN
     Dosage: UNK
  3. CLARITIN-D 24 HOUR [Suspect]
     Active Substance: LORATADINE\PSEUDOEPHEDRINE SULFATE
     Indication: SEASONAL ALLERGY
     Dosage: UNK UNK, Q4HR
     Route: 048
     Dates: start: 20180508, end: 20180509
  4. CLARITIN-D 24 HOUR [Suspect]
     Active Substance: LORATADINE\PSEUDOEPHEDRINE SULFATE
     Indication: SEASONAL ALLERGY
     Dosage: UNK, Q4HR
     Route: 048
  5. LIPITOR [Concomitant]
     Active Substance: ATORVASTATIN CALCIUM
     Dosage: UNK
  6. GLIPIZIDE. [Concomitant]
     Active Substance: GLIPIZIDE
     Dosage: UNK
  7. CALCIUM [ASCORBIC ACID,CALCIUM LACTATE GLUCONATE] [Concomitant]
     Dosage: UNK

REACTIONS (4)
  - Expired product administered [Unknown]
  - Product use issue [Recovered/Resolved]
  - Incorrect dose administered [None]
  - Somnolence [Unknown]

NARRATIVE: CASE EVENT DATE: 20180509
